FAERS Safety Report 8095935-5 (Version None)
Quarter: 2012Q1

REPORT INFORMATION
  Report Type: 
  Country: None (occurrence: None)
  Receive Date: 20120129
  Receipt Date: 20111222
  Transmission Date: 20120608
  Serious: No
  Sender: FDA-Public Use
  Company Number: US-ABBOTT-11P-163-0886678-00

PATIENT
  Age: 50 Year
  Sex: Female

DRUGS (4)
  1. HUMIRA [Suspect]
     Dates: start: 20111228, end: 20111228
  2. PREDNISONE TAB [Concomitant]
     Indication: PRODUCT USED FOR UNKNOWN INDICATION
  3. HUMIRA [Suspect]
     Indication: CROHN'S DISEASE
     Dates: start: 20111214, end: 20111214
  4. IRON [Concomitant]
     Indication: PRODUCT USED FOR UNKNOWN INDICATION

REACTIONS (7)
  - NASOPHARYNGITIS [None]
  - RHINORRHOEA [None]
  - OROPHARYNGEAL PAIN [None]
  - EYE SWELLING [None]
  - VAGINAL DISCHARGE [None]
  - OCULAR HYPERAEMIA [None]
  - RECTAL DISCHARGE [None]
